FAERS Safety Report 7223088-1 (Version None)
Quarter: 2011Q1

REPORT INFORMATION
  Report Type: 
  Country: None (occurrence: None)
  Receive Date: 20110112
  Receipt Date: 20100217
  Transmission Date: 20110831
  Serious: No
  Sender: FDA-Public Use
  Company Number: US-ALLERGAN-1000401US

PATIENT
  Age: 69 Year
  Sex: Female
  Weight: 63.946 kg

DRUGS (4)
  1. FLAGYL [Concomitant]
     Indication: COLITIS
     Dosage: UNK
     Dates: start: 20100121, end: 20100128
  2. RESTASIS [Suspect]
     Indication: DRY EYE
     Dosage: 1 GTT, Q12H
     Route: 047
     Dates: start: 20091226
  3. CIPRO [Concomitant]
     Indication: COLITIS
     Dosage: UNK
     Dates: start: 20100121, end: 20100128
  4. NEXIUM [Concomitant]
     Indication: BARRETT'S OESOPHAGUS
     Dosage: 40 MG, QD

REACTIONS (2)
  - PHOTOPHOBIA [None]
  - EYE IRRITATION [None]
